FAERS Safety Report 9134826 (Version 2)
Quarter: 2013Q2

REPORT INFORMATION
  Report Type: Report from Study
  Country: CA (occurrence: CA)
  Receive Date: 20130304
  Receipt Date: 20130625
  Transmission Date: 20140414
  Serious: Yes (Other)
  Sender: FDA-Public Use
  Company Number: CA-JNJFOC-20130216474

PATIENT
  Sex: Male
  Weight: 63.7 kg

DRUGS (5)
  1. REMICADE [Suspect]
     Indication: CROHN^S DISEASE
     Dosage: 20 INFUSIONS TO PRESENT
     Route: 042
  2. IMURAN [Concomitant]
     Route: 065
  3. ASACOL [Concomitant]
     Route: 065
  4. FOLIC ACID [Concomitant]
     Route: 065
  5. XALATAN [Concomitant]
     Route: 047

REACTIONS (1)
  - Fistula [Unknown]
